FAERS Safety Report 9514662 (Version 1)
Quarter: 2013Q1

REPORT INFORMATION
  Report Type: Spontaneous
  Country: US (occurrence: None)
  Receive Date: 20130305
  Receipt Date: 20130305
  Transmission Date: 20140127
  Serious: Yes (Hospitalization, Other)
  Sender: FDA-Public Use
  Company Number: 163-21880-12112089

PATIENT
  Age: 58 Year
  Sex: Male

DRUGS (2)
  1. REVLIMID [Suspect]
     Indication: PLASMA CELL MYELOMA
     Dosage: 5 MG ON MON, WED, FRI
     Route: 048
     Dates: start: 20121018
  2. CHEMOTHERAPY (UNKNOWN) [Concomitant]

REACTIONS (3)
  - Oesophageal haemorrhage [None]
  - Nausea [None]
  - Vomiting [None]
